FAERS Safety Report 8487018-7 (Version None)
Quarter: 2012Q3

REPORT INFORMATION
  Report Type: 
  Country: None (occurrence: None)
  Receive Date: 20120704
  Receipt Date: 20120629
  Transmission Date: 20120928
  Serious: Yes (Other)
  Sender: FDA-Public Use
  Company Number: PHFR2012GB003032

PATIENT

DRUGS (1)
  1. NEORAL [Suspect]

REACTIONS (1)
  - ORAL ADMINISTRATION COMPLICATION [None]
